FAERS Safety Report 5733788-8 (Version None)
Quarter: 2008Q2

REPORT INFORMATION
  Report Type: 
  Country: None (occurrence: None)
  Receive Date: 20080509
  Receipt Date: 20080428
  Transmission Date: 20081010
  Serious: Yes (Hospitalization, Other)
  Sender: FDA-Public Use
  Company Number: US-PFIZER INC-2008026313

PATIENT
  Age: 62 Year
  Sex: Male

DRUGS (14)
  1. SUTENT [Suspect]
     Indication: GASTROINTESTINAL STROMAL TUMOUR
  2. ZOFRAN [Concomitant]
     Route: 048
  3. ALLEGRA [Concomitant]
  4. TOPROL-XL [Concomitant]
  5. SYNTHROID [Concomitant]
  6. LEXAPRO [Concomitant]
     Route: 048
  7. VITAMIN CAP [Concomitant]
  8. PREDNISONE TAB [Concomitant]
  9. CLONIDINE HYDROCHLORIDE [Concomitant]
     Route: 048
  10. MORPHINE SULFATE [Concomitant]
     Indication: PAIN
     Route: 048
  11. FUROSEMIDE [Concomitant]
     Route: 048
  12. ARANESP [Concomitant]
     Dosage: TEXT:300 MCG/ML-FREQ:500 MCG EVERY 3 WEEKS
     Route: 058
  13. LEVAQUIN [Concomitant]
     Route: 048
  14. NOVOLOG [Concomitant]

REACTIONS (14)
  - ABDOMINAL DISTENSION [None]
  - ABDOMINAL PAIN [None]
  - CHILLS [None]
  - CONFUSIONAL STATE [None]
  - DIARRHOEA [None]
  - DIZZINESS [None]
  - FATIGUE [None]
  - HEPATIC FAILURE [None]
  - NAUSEA [None]
  - OEDEMA PERIPHERAL [None]
  - RENAL FAILURE ACUTE [None]
  - SCROTAL OEDEMA [None]
  - THROMBOCYTOPENIA [None]
  - VOMITING [None]
